FAERS Safety Report 8948284 (Version 2)
Quarter: 2012Q4

REPORT INFORMATION
  Report Type: 
  Country: US (occurrence: US)
  Receive Date: 20121121
  Receipt Date: 20121212
  Transmission Date: 20130627
  Serious: Yes (Death, Life-Threatening)
  Sender: FDA-Public Use
  Company Number: US-ASTELLAS-1118095

PATIENT
  Age: 6 Year
  Sex: Female

DRUGS (1)
  1. TARCEVA [Suspect]
     Indication: NON-SMALL CELL LUNG CANCER
     Dosage: Daily
     Route: 048
     Dates: start: 20050730, end: 20050829

REACTIONS (2)
  - Non-small cell lung cancer [Fatal]
  - Rash [Recovering/Resolving]
